FAERS Safety Report 19832503 (Version 1)
Quarter: 2021Q3

REPORT INFORMATION
  Report Type: Report from Study
  Country: US (occurrence: US)
  Receive Date: 20210915
  Receipt Date: 20210915
  Transmission Date: 20211014
  Serious: Yes (Death, Other)
  Sender: FDA-Public Use
  Company Number: US-GLAXOSMITHKLINE-US2020AMR131275

PATIENT
  Age: 75 Year
  Sex: Female

DRUGS (7)
  1. NIRAPARIB [Suspect]
     Active Substance: NIRAPARIB
     Dosage: 100 MG, QD (1 DF QD))
     Route: 065
  2. NIRAPARIB [Suspect]
     Active Substance: NIRAPARIB
     Dosage: 100 MG
     Route: 065
     Dates: start: 202007
  3. NIRAPARIB [Suspect]
     Active Substance: NIRAPARIB
     Dosage: 100MG ALT W/200MG?PO
     Route: 048
  4. NIRAPARIB [Suspect]
     Active Substance: NIRAPARIB
     Dosage: 200 MG
     Route: 065
     Dates: start: 202006
  5. NIRAPARIB [Suspect]
     Active Substance: NIRAPARIB
     Dosage: UNK (100MG ALTERNATING W/200MG)
  6. NIRAPARIB [Suspect]
     Active Substance: NIRAPARIB
     Dosage: 100MG ALTERNATING WITH 200MG
     Route: 065
     Dates: start: 202008
  7. NIRAPARIB [Suspect]
     Active Substance: NIRAPARIB
     Indication: OVARIAN CANCER
     Dosage: 2 DF, QD
     Route: 065
     Dates: start: 202005

REACTIONS (4)
  - Death [Fatal]
  - Platelet count decreased [Not Recovered/Not Resolved]
  - Insomnia [Not Recovered/Not Resolved]
  - Inappropriate schedule of product administration [Unknown]

NARRATIVE: CASE EVENT DATE: 20210903
